FAERS Safety Report 21780097 (Version 3)
Quarter: 2023Q1

REPORT INFORMATION
  Report Type: Spontaneous
  Country: US (occurrence: None)
  Receive Date: 20221226
  Receipt Date: 20230217
  Transmission Date: 20230417
  Serious: No
  Sender: FDA-Public Use
  Company Number: 2022A399458

PATIENT
  Age: 70 Year
  Sex: Female
  Weight: 96.6 kg

DRUGS (1)
  1. BYDUREON BCISE [Suspect]
     Active Substance: EXENATIDE
     Indication: Type 2 diabetes mellitus
     Route: 058
     Dates: start: 20220427

REACTIONS (5)
  - Injection site pain [Recovered/Resolved]
  - Injection site haemorrhage [Unknown]
  - Product administered at inappropriate site [Unknown]
  - Needle issue [Unknown]
  - Device defective [Unknown]

NARRATIVE: CASE EVENT DATE: 20220601
